FAERS Safety Report 5558956-X (Version None)
Quarter: 2007Q4

REPORT INFORMATION
  Report Type: 
  Country: None (occurrence: None)
  Receive Date: 20071214
  Receipt Date: 20070911
  Transmission Date: 20080405
  Serious: No
  Sender: FDA-Public Use
  Company Number: US-ABBOTT-07P-163-0417034-00

PATIENT
  Sex: Female
  Weight: 83.082 kg

DRUGS (4)
  1. HUMIRA [Suspect]
     Indication: RHEUMATOID ARTHRITIS
     Route: 058
     Dates: start: 20070824
  2. METHOTREXATE [Concomitant]
     Indication: DRUG USE FOR UNKNOWN INDICATION
  3. PAIN MEDICATIONS [Concomitant]
     Indication: DRUG USE FOR UNKNOWN INDICATION
  4. LEVOTHYROXINE SODIUM [Concomitant]
     Indication: HYPOTHYROIDISM

REACTIONS (5)
  - FUNGAL INFECTION [None]
  - MUSCULAR WEAKNESS [None]
  - POLLAKIURIA [None]
  - THIRST [None]
  - VISION BLURRED [None]
